FAERS Safety Report 17004203 (Version 1)
Quarter: 2019Q4

REPORT INFORMATION
  Report Type: Spontaneous
  Country: JP (occurrence: JP)
  Receive Date: 20191107
  Receipt Date: 20191107
  Transmission Date: 20200122
  Serious: Yes (Death, Hospitalization, Other)
  Sender: FDA-Public Use
  Company Number: JP-PFIZER INC-2019474516

PATIENT
  Age: 8 Decade
  Sex: Male

DRUGS (2)
  1. XARELTO [Suspect]
     Active Substance: RIVAROXABAN
     Dosage: UNK
  2. TORISEL [Suspect]
     Active Substance: TEMSIROLIMUS
     Dosage: UNK

REACTIONS (7)
  - Deep vein thrombosis [Unknown]
  - Ileus [Unknown]
  - Death [Fatal]
  - Neoplasm progression [Unknown]
  - Diplegia [Unknown]
  - Arterial thrombosis [Unknown]
  - Pulmonary artery thrombosis [Unknown]
